FAERS Safety Report 7932450-0 (Version None)
Quarter: 2011Q4

REPORT INFORMATION
  Report Type: 
  Country: None (occurrence: None)
  Receive Date: 20111122
  Receipt Date: 20111115
  Transmission Date: 20120403
  Serious: Yes (Hospitalization)
  Sender: FDA-Public Use
  Company Number: AR-BIOGENIDEC-2011BI043835

PATIENT
  Age: 35 Year
  Sex: Female

DRUGS (10)
  1. AVONEX [Suspect]
     Indication: MULTIPLE SCLEROSIS
     Route: 030
  2. PEPTAZOL (PANTOPRAZOLE) [Concomitant]
  3. LIORESAL [Concomitant]
  4. ATENIX (SERTRALINE) [Concomitant]
  5. ALPLAX (ALPRAZOLAM) [Concomitant]
  6. IBUPIRAC (IBUPROFEN) [Concomitant]
  7. TANVIMIL (VITAMINS) [Concomitant]
  8. DITROPAN [Concomitant]
  9. PLENICA (PREGABALIN) [Concomitant]
  10. VALIUM [Concomitant]

REACTIONS (2)
  - INTESTINAL OBSTRUCTION [None]
  - ESCHAR [None]
